FAERS Safety Report 10563845 (Version 2)
Quarter: 2014Q4

REPORT INFORMATION
  Report Type: Spontaneous
  Country: ES (occurrence: ES)
  Receive Date: 20141104
  Receipt Date: 20141104
  Transmission Date: 20150529
  Serious: Yes (Hospitalization)
  Sender: FDA-Public Use
  Company Number: ES-NOVOPROD-420598

PATIENT
  Age: 29 Year
  Sex: Female
  Weight: 132 kg

DRUGS (8)
  1. ACTRAPID [Suspect]
     Active Substance: INSULIN HUMAN
     Dosage: 10 IU, QD
     Route: 065
  2. LANTUS [Concomitant]
     Active Substance: INSULIN GLARGINE
     Dosage: UNK
     Route: 065
  3. ACTRAPID [Suspect]
     Active Substance: INSULIN HUMAN
     Indication: PRODUCT USED FOR UNKNOWN INDICATION
     Dosage: 45 IU, QD
     Route: 065
  4. ACTRAPID [Suspect]
     Active Substance: INSULIN HUMAN
     Dosage: 1.4-2 UNITS PER HOUR
     Route: 065
  5. ACTRAPID [Suspect]
     Active Substance: INSULIN HUMAN
     Dosage: 32 IU, QD
     Route: 065
  6. ACTRAPID [Suspect]
     Active Substance: INSULIN HUMAN
     Dosage: 0.4 UNITS/KG(6 UNITS WITH BREAKFAST AND LUNCH AND 8 UNITS AT DINNER)
     Route: 065
  7. ACTRAPID [Suspect]
     Active Substance: INSULIN HUMAN
     Dosage: UNK
     Route: 065
  8. LANTUS [Concomitant]
     Active Substance: INSULIN GLARGINE
     Indication: PRODUCT USED FOR UNKNOWN INDICATION
     Dosage: 25 UNITS AT NIGHT
     Route: 065

REACTIONS (3)
  - Exposure during pregnancy [Recovered/Resolved]
  - Hypoglycaemia [Unknown]
  - Premature rupture of membranes [Recovered/Resolved]
